FAERS Safety Report 7000426-6 (Version None)
Quarter: 2010Q3

REPORT INFORMATION
  Report Type: 
  Country: None (occurrence: None)
  Receive Date: 20100920
  Receipt Date: 20091005
  Transmission Date: 20110219
  Serious: No
  Sender: FDA-Public Use
  Company Number: US-ASTRAZENECA-2009SE18146

PATIENT
  Age: 16744 Day
  Sex: Female
  Weight: 76.2 kg

DRUGS (4)
  1. SEROQUEL XR [Suspect]
     Indication: DEPRESSION
     Route: 048
     Dates: start: 20090929
  2. SEROQUEL XR [Suspect]
     Indication: ANXIETY
     Route: 048
     Dates: start: 20090929
  3. PRISTIQ [Concomitant]
  4. LORAZEPAM [Concomitant]

REACTIONS (8)
  - CHEST PAIN [None]
  - CONSTIPATION [None]
  - MUSCULAR WEAKNESS [None]
  - MUSCULOSKELETAL PAIN [None]
  - NASAL CONGESTION [None]
  - NASAL DRYNESS [None]
  - NECK PAIN [None]
  - PAIN IN EXTREMITY [None]
